FAERS Safety Report 10089363 (Version 2)
Quarter: 2014Q3

REPORT INFORMATION
  Report Type: Spontaneous
  Country: AU (occurrence: None)
  Receive Date: 20140417
  Receipt Date: 20140722
  Transmission Date: 20150326
  Serious: Yes (Life-Threatening, Hospitalization)
  Sender: FDA-Public Use
  Company Number: AUR-APL-2014-04503

PATIENT
  Age: 0 Day
  Sex: Female
  Weight: 3.8 kg

DRUGS (4)
  1. AURO-QUETIPAINE 200 (QUETIPAINE) FILM-COATED TABLET, 200MG [Suspect]
     Active Substance: QUETIAPINE
     Indication: PRODUCT USED FOR UNKNOWN INDICATION
     Route: 064
  2. VALIUM [Suspect]
     Active Substance: DIAZEPAM
     Indication: PRODUCT USED FOR UNKNOWN INDICATION
     Route: 064
  3. SALAZOPYRIN [Suspect]
     Active Substance: SULFASALAZINE
     Indication: PRODUCT USED FOR UNKNOWN INDICATION
     Route: 064
  4. THYROXINE (LEVOTHYROXINE SODIUM) [Concomitant]
     Active Substance: LEVOTHYROXINE

REACTIONS (11)
  - Respiratory distress [None]
  - Somnolence [None]
  - Failed forceps delivery [None]
  - Oxygen saturation decreased [None]
  - Sneezing [None]
  - Foetal exposure during pregnancy [None]
  - Foetal distress syndrome [None]
  - Poor sucking reflex [None]
  - Caesarean section [None]
  - Feeding disorder neonatal [None]
  - Drug withdrawal syndrome neonatal [None]

NARRATIVE: CASE EVENT DATE: 20120623
